FAERS Safety Report 12247251 (Version 1)
Quarter: 2016Q2

REPORT INFORMATION
  Report Type: Spontaneous
  Country: US (occurrence: US)
  Receive Date: 20160407
  Receipt Date: 20160407
  Transmission Date: 20160815
  Serious: No
  Sender: FDA-Public Use
  Company Number: US-009507513-1603USA013518

PATIENT

DRUGS (2)
  1. CUBICIN [Suspect]
     Active Substance: DAPTOMYCIN
     Dosage: 414 MG, QD
     Route: 042
     Dates: start: 20160215, end: 20160225
  2. CUBICIN [Suspect]
     Active Substance: DAPTOMYCIN
     Dosage: 414 MG, QD
     Route: 042
     Dates: start: 20160314, end: 20160322

REACTIONS (2)
  - Inappropriate schedule of drug administration [Unknown]
  - No adverse event [Unknown]

NARRATIVE: CASE EVENT DATE: 20160226
